FAERS Safety Report 12728318 (Version 1)
Quarter: 2016Q3

REPORT INFORMATION
  Report Type: Spontaneous
  Country: US (occurrence: US)
  Receive Date: 20160907
  Receipt Date: 20160907
  Transmission Date: 20161109
  Serious: Yes (Disabling)
  Sender: FDA-Public Use
  Company Number: None

PATIENT
  Age: 74 Year
  Sex: Female
  Weight: 66.15 kg

DRUGS (7)
  1. SERTRALINE HCL [Suspect]
     Active Substance: SERTRALINE HYDROCHLORIDE
     Indication: DEPRESSION
     Route: 048
  2. SIMVASTATIN. [Concomitant]
     Active Substance: SIMVASTATIN
  3. VERAPAMIL ER [Concomitant]
     Active Substance: VERAPAMIL HYDROCHLORIDE
  4. CENTRUM SILVER- WOMEN 50+ [Concomitant]
  5. LORSARTAN HCTZ [Concomitant]
  6. LORAZEPAM. [Concomitant]
     Active Substance: LORAZEPAM
  7. WALGREENS GLUCOSAMINE CHONDROITIN MSM + VITAMIN D3 [Concomitant]

REACTIONS (3)
  - Product substitution issue [None]
  - Depression [None]
  - Drug ineffective [None]
